FAERS Safety Report 4391247-1 (Version None)
Quarter: 2004Q2

REPORT INFORMATION
  Report Type: 
  Country: None (occurrence: None)
  Receive Date: 20040621
  Receipt Date: 20040126
  Transmission Date: 20050107
  Serious: Yes (Hospitalization, Other)
  Sender: FDA-Public Use
  Company Number: USA-2002-0000707

PATIENT
  Age: 25 Year
  Sex: Female
  Weight: 63.5 kg

DRUGS (31)
  1. OXYCONTIN [Suspect]
     Indication: PAIN
     Dosage: 10 MG, SEE TEXT, ORAL
     Route: 048
     Dates: start: 19980101, end: 20010415
  2. OXYCODONE HCL [Suspect]
     Indication: PAIN
     Dosage: 5 MG, ORAL
     Route: 048
     Dates: start: 20010406
  3. MORPHINE SULFATE [Suspect]
     Indication: PAIN
     Dosage: INT (CONT)
  4. NEURONTIN [Suspect]
     Dosage: 300 MG, ORAL
     Route: 048
  5. LORTAB [Suspect]
     Indication: PAIN
     Dosage: 1 TABLET, BID, ORAL
     Route: 048
  6. VICOPROFEN [Concomitant]
  7. ACETAMINOPHEN AND HYDROCODONE BITARTRATE [Concomitant]
  8. RELAFEN [Concomitant]
  9. DOXEPIN HCL [Concomitant]
  10. PROCHLORPERAZINE [Concomitant]
  11. VIOXX [Concomitant]
  12. ULTRAM [Concomitant]
  13. AMBIEN [Concomitant]
  14. PENICILLIN VK [Concomitant]
  15. DEXAMETHASONE [Concomitant]
  16. METRONIDAZOLE [Concomitant]
  17. MEPROZINE [Concomitant]
  18. PROMETHAZINE [Concomitant]
  19. CLONAZEPAM [Concomitant]
  20. CELEBREX [Concomitant]
  21. DEPO-PROVERA [Concomitant]
  22. THIAMINE [Concomitant]
  23. PHENERGAN ^SPECIA^ [Concomitant]
  24. ZANTAC [Concomitant]
  25. SUDAFED S.A. [Concomitant]
  26. DOLOBID [Concomitant]
  27. GLUCOLA (DOES NOT CODE) [Concomitant]
  28. TYLOX [Concomitant]
  29. THERAGRAN [Concomitant]
  30. DESYREL [Concomitant]
  31. DOLOPHINE HYDROCHLORIDE [Concomitant]

REACTIONS (47)
  - ABDOMINAL PAIN [None]
  - AGITATION [None]
  - ANXIETY [None]
  - ASTHENIA [None]
  - BUTTOCK PAIN [None]
  - CONSTIPATION [None]
  - COUGH [None]
  - DECREASED APPETITE [None]
  - DEPRESSION [None]
  - DIARRHOEA [None]
  - DISCOMFORT [None]
  - DRUG ABUSER [None]
  - DRUG DEPENDENCE [None]
  - DRUG EXPOSURE DURING PREGNANCY [None]
  - DRUG INEFFECTIVE [None]
  - DRUG WITHDRAWAL SYNDROME [None]
  - FOOT DEFORMITY [None]
  - FRACTURE NONUNION [None]
  - GENERALISED ANXIETY DISORDER [None]
  - HYPERTENSION [None]
  - HYPOAESTHESIA [None]
  - INSOMNIA [None]
  - JOINT CONTRACTURE [None]
  - LIMB DEFORMITY [None]
  - MOTOR DYSFUNCTION [None]
  - MUSCLE ATROPHY [None]
  - MUSCLE CRAMP [None]
  - MYALGIA [None]
  - NAUSEA [None]
  - NEUROPATHIC PAIN [None]
  - OEDEMA PERIPHERAL [None]
  - PAIN [None]
  - PAIN IN EXTREMITY [None]
  - PERONEAL NERVE PALSY [None]
  - RADICULOPATHY [None]
  - RASH MACULAR [None]
  - RHINORRHOEA [None]
  - ROAD TRAFFIC ACCIDENT [None]
  - SCAR [None]
  - SCIATICA [None]
  - SENSORY LOSS [None]
  - STRESS SYMPTOMS [None]
  - TENDERNESS [None]
  - URINARY HESITATION [None]
  - VOMITING [None]
  - WEIGHT DECREASED [None]
  - WEIGHT INCREASED [None]
